FAERS Safety Report 21185194 (Version 1)
Quarter: 2022Q3

REPORT INFORMATION
  Report Type: Spontaneous
  Country: US (occurrence: None)
  Receive Date: 20220808
  Receipt Date: 20220808
  Transmission Date: 20221027
  Serious: No
  Sender: FDA-Public Use
  Company Number: None

PATIENT
  Age: 52 Year
  Sex: Male
  Weight: 92.25 kg

DRUGS (1)
  1. PAXLOVID [Suspect]
     Active Substance: NIRMATRELVIR\RITONAVIR
     Indication: SARS-CoV-2 test positive
     Dosage: FREQUENCY : TWICE A DAY;?
     Dates: start: 20220806, end: 20220806

REACTIONS (8)
  - Feeling abnormal [None]
  - Decreased appetite [None]
  - Vertigo [None]
  - Abdominal pain upper [None]
  - Hypophagia [None]
  - Dizziness [None]
  - Dysstasia [None]
  - Dizziness postural [None]

NARRATIVE: CASE EVENT DATE: 20220806
